FAERS Safety Report 16766186 (Version 3)
Quarter: 2019Q3

REPORT INFORMATION
  Report Type: Report from Study
  Country: FR (occurrence: FR)
  Receive Date: 20190903
  Receipt Date: 20190924
  Transmission Date: 20191005
  Serious: Yes (Other)
  Sender: FDA-Public Use
  Company Number: FR-MYLANLABS-2019M1052814

PATIENT
  Age: 60 Year
  Sex: Male
  Weight: 58.8 kg

DRUGS (7)
  1. PREDNISONE. [Suspect]
     Active Substance: PREDNISONE
     Dosage: 10 MILLIGRAM, QD
     Route: 065
     Dates: start: 20181208
  2. METHYLPREDNISOLONE. [Suspect]
     Active Substance: METHYLPREDNISOLONE
     Indication: IMMUNOSUPPRESSANT DRUG THERAPY
     Dosage: 500 MILLIGRAM, QD
     Route: 065
     Dates: start: 20181101, end: 20181101
  3. METHYLPREDNISOLONE. [Suspect]
     Active Substance: METHYLPREDNISOLONE
     Dosage: 125 MG, QD
     Route: 065
     Dates: start: 20181102, end: 20181102
  4. ADOPORT [Suspect]
     Active Substance: TACROLIMUS
     Indication: RENAL TRANSPLANT
     Dosage: 3 MILLIGRAM
     Route: 048
     Dates: start: 20181101
  5. PREDNISONE. [Suspect]
     Active Substance: PREDNISONE
     Dosage: 15 MILLIGRAM, QD
     Route: 065
     Dates: start: 20181121
  6. ADOPORT [Suspect]
     Active Substance: TACROLIMUS
     Dosage: 5 MG, UNK
     Route: 048
     Dates: start: 20181101
  7. PREDNISONE. [Suspect]
     Active Substance: PREDNISONE
     Indication: IMMUNOSUPPRESSANT DRUG THERAPY
     Dosage: 20 MG, QD
     Route: 065
     Dates: start: 20181103

REACTIONS (5)
  - Steroid diabetes [Recovered/Resolved]
  - Diarrhoea [Recovered/Resolved]
  - Hypokalaemia [Recovering/Resolving]
  - Anaemia [Recovered/Resolved]
  - Blood phosphorus decreased [Not Recovered/Not Resolved]

NARRATIVE: CASE EVENT DATE: 20181101
